FAERS Safety Report 16494043 (Version 3)
Quarter: 2019Q4

REPORT INFORMATION
  Report Type: Spontaneous
  Country: JP (occurrence: JP)
  Receive Date: 20190628
  Receipt Date: 20191215
  Transmission Date: 20200122
  Serious: Yes (Life-Threatening, Hospitalization, Other)
  Sender: FDA-Public Use
  Company Number: JP-AMGEN-JPNSP2019084786

PATIENT
  Age: 72 Year
  Sex: Female

DRUGS (106)
  1. MICARDIS [Concomitant]
     Active Substance: TELMISARTAN
     Indication: PRODUCT USED FOR UNKNOWN INDICATION
     Dosage: 40 MILLIGRAM, QD AFTER BREAKFAST
     Route: 048
     Dates: end: 20190420
  2. MICARDIS [Concomitant]
     Active Substance: TELMISARTAN
     Dosage: 40 MILLIGRAM, QD AFTER BREAKFAST
     Route: 048
     Dates: start: 20190430, end: 20190530
  3. SLOW-K [Concomitant]
     Active Substance: POTASSIUM CHLORIDE
     Indication: PRODUCT USED FOR UNKNOWN INDICATION
     Dosage: 600 MG, BID,AFTER BREAKFAST,AFTER DINNER
     Route: 048
     Dates: start: 20190516, end: 20190530
  4. DECADRON [Concomitant]
     Active Substance: DEXAMETHASONE
     Indication: PRODUCT USED FOR UNKNOWN INDICATION
     Dosage: 2 MILLIGRAM, BID
     Route: 048
     Dates: start: 20190418, end: 20190419
  5. POSTERISAN [HYDROCORTISONE] [Concomitant]
     Indication: PRODUCT USED FOR UNKNOWN INDICATION
     Dosage: UNK, BID
     Route: 061
     Dates: start: 20190420
  6. CRAVIT [Concomitant]
     Active Substance: LEVOFLOXACIN
     Indication: PRODUCT USED FOR UNKNOWN INDICATION
     Dosage: 500 MILLIGRAM, QD
     Route: 048
     Dates: start: 20190427, end: 20190429
  7. SEISHOKU [Concomitant]
     Active Substance: SODIUM CHLORIDE
     Indication: PRODUCT USED FOR UNKNOWN INDICATION
     Dosage: 1000 MILLILITER
     Route: 041
     Dates: start: 20190418, end: 20190418
  8. SEISHOKU [Concomitant]
     Active Substance: SODIUM CHLORIDE
     Dosage: 250 MILLILITER
     Route: 041
     Dates: start: 20190508, end: 20190510
  9. SEISHOKU [Concomitant]
     Active Substance: SODIUM CHLORIDE
     Dosage: 250 MILLILITER
     Route: 041
     Dates: start: 20190509, end: 20190511
  10. SEISHOKU [Concomitant]
     Active Substance: SODIUM CHLORIDE
     Dosage: 250 MILLILITER
     Route: 041
     Dates: start: 20190514, end: 20190516
  11. VEEN-F [Concomitant]
     Active Substance: CALCIUM CHLORIDE\MAGNESIUM CHLORIDE\POTASSIUM CHLORIDE\SODIUM ACETATE\SODIUM CHLORIDE
     Dosage: 500 MILLILITER
     Route: 041
     Dates: start: 20190501, end: 20190505
  12. MEROPEN [MEROPENEM TRIHYDRATE] [Concomitant]
     Active Substance: MEROPENEM
     Dosage: 0.5 GRAM
     Route: 041
     Dates: start: 20190506, end: 20190513
  13. VANCOMYCIN HYDROCHLORIDE. [Concomitant]
     Active Substance: VANCOMYCIN HYDROCHLORIDE
     Dosage: 1.5 GRAM
     Route: 041
     Dates: start: 20190512, end: 20190513
  14. VANCOMYCIN HYDROCHLORIDE. [Concomitant]
     Active Substance: VANCOMYCIN HYDROCHLORIDE
     Dosage: 1.75 GRAM
     Route: 041
     Dates: start: 20190509, end: 20190511
  15. FUNGUARD [Concomitant]
     Active Substance: MICAFUNGIN SODIUM
     Indication: PRODUCT USED FOR UNKNOWN INDICATION
     Dosage: 150 MILLIGRAM
     Route: 041
     Dates: start: 20190503, end: 20190508
  16. ALFACALCIDOL [Concomitant]
     Active Substance: ALFACALCIDOL
     Indication: PRODUCT USED FOR UNKNOWN INDICATION
     Dosage: 0.5 MICROGRAM, QD AFTER BREAKFAST
     Route: 048
     Dates: end: 20190422
  17. ALFACALCIDOL [Concomitant]
     Active Substance: ALFACALCIDOL
     Dosage: 0.5 MICROGRAM, QD AFTER BREAKFAST
     Route: 048
     Dates: start: 20190430, end: 20190519
  18. FEBURIC [Concomitant]
     Active Substance: FEBUXOSTAT
     Indication: PRODUCT USED FOR UNKNOWN INDICATION
     Dosage: 20 MILLIGRAM, QD AFTER BREAKFAST
     Route: 048
     Dates: end: 20190419
  19. ATORVASTATIN [Concomitant]
     Active Substance: ATORVASTATIN
     Indication: PRODUCT USED FOR UNKNOWN INDICATION
     Dosage: 5 MILLIGRAM, QD AFTER DINNER
     Route: 048
     Dates: end: 20190418
  20. BEZAFIBRATE [Concomitant]
     Active Substance: BEZAFIBRATE
     Dosage: 100 MILLIGRAM, QD, AFTER DINNER
     Route: 048
     Dates: start: 20190430, end: 20190519
  21. MIYA-BM [Concomitant]
     Active Substance: CLOSTRIDIUM BUTYRICUM SPORES STRAIN M-55
     Indication: PRODUCT USED FOR UNKNOWN INDICATION
     Dosage: 1 DOSAGE FORM, TID, AFTER EACH MEAL
     Route: 048
     Dates: start: 20190427, end: 20190530
  22. LOXOPROFEN [LOXOPROFEN SODIUM] [Concomitant]
     Active Substance: LOXOPROFEN SODIUM
     Indication: PRODUCT USED FOR UNKNOWN INDICATION
     Dosage: 60 MILLIGRAM, AS NECESSARY
     Route: 048
     Dates: start: 20190418, end: 20190418
  23. LOXOPROFEN [LOXOPROFEN SODIUM] [Concomitant]
     Active Substance: LOXOPROFEN SODIUM
     Dosage: 60 MILLIGRAM, AS NECESSARY
     Route: 048
     Dates: start: 20190501, end: 20190512
  24. SPIRONOLACTONE. [Concomitant]
     Active Substance: SPIRONOLACTONE
     Indication: PRODUCT USED FOR UNKNOWN INDICATION
     Dosage: 25 MG, QD
     Route: 048
     Dates: start: 20190509, end: 20190530
  25. SEISHOKU [Concomitant]
     Active Substance: SODIUM CHLORIDE
     Dosage: 100 MILLILITER
     Route: 041
     Dates: start: 20190503, end: 20190505
  26. SEISHOKU [Concomitant]
     Active Substance: SODIUM CHLORIDE
     Dosage: 250 MILLILITER
     Route: 041
     Dates: start: 20190505, end: 20190507
  27. VANCOMYCIN HYDROCHLORIDE. [Concomitant]
     Active Substance: VANCOMYCIN HYDROCHLORIDE
     Dosage: 1.25 GRAM
     Route: 041
     Dates: start: 20190514, end: 20190515
  28. SODIUM CHLORIDE. [Concomitant]
     Active Substance: SODIUM CHLORIDE
     Dosage: 40 MILLILITER
     Route: 041
     Dates: start: 20190508, end: 20190510
  29. SOLDEM 3AG [Concomitant]
     Indication: PRODUCT USED FOR UNKNOWN INDICATION
     Dosage: 500 MILLILITER
     Route: 041
     Dates: start: 20190508, end: 20190510
  30. DOCETAXEL. [Concomitant]
     Active Substance: DOCETAXEL
     Indication: HER-2 POSITIVE BREAST CANCER
     Dosage: UNK
     Route: 041
     Dates: start: 20190328
  31. HERCEPTIN [Concomitant]
     Active Substance: TRASTUZUMAB
     Dosage: 499.8 MILLIGRAM
     Route: 041
     Dates: start: 20190418, end: 20190418
  32. LENDORMIN [Concomitant]
     Active Substance: BROTIZOLAM
     Indication: PRODUCT USED FOR UNKNOWN INDICATION
     Dosage: 0.25 MILLIGRAM, QD BEFORE BEDTIME
     Route: 048
     Dates: end: 20190425
  33. LENDORMIN [Concomitant]
     Active Substance: BROTIZOLAM
     Dosage: 0.25 MILLIGRAM, QD, BEFORE BEDTIME
     Route: 048
     Dates: start: 20190430, end: 20190530
  34. ALESION [Concomitant]
     Active Substance: EPINASTINE HYDROCHLORIDE
     Indication: PRODUCT USED FOR UNKNOWN INDICATION
     Dosage: 20 MILLIGRAM, QD, AFTER DINNER
     Route: 048
     Dates: start: 20190514, end: 20190520
  35. LOXOPROFEN [LOXOPROFEN SODIUM] [Concomitant]
     Active Substance: LOXOPROFEN SODIUM
     Dosage: 60 MILLIGRAM, AS NECESSARY
     Route: 048
     Dates: start: 20190514, end: 20190515
  36. LIPIDIL [Concomitant]
     Active Substance: FENOFIBRATE
     Indication: PRODUCT USED FOR UNKNOWN INDICATION
     Dosage: 80 MILLIGRAM, QD
     Route: 048
     Dates: start: 20190520, end: 20190530
  37. DEXALTIN [Concomitant]
     Active Substance: DEXAMETHASONE
     Indication: PRODUCT USED FOR UNKNOWN INDICATION
     Dosage: UNK, AS NECESSARY
     Route: 049
     Dates: start: 20190427
  38. SEISHOKU [Concomitant]
     Active Substance: SODIUM CHLORIDE
     Dosage: 100 MILLILITER
     Route: 041
     Dates: start: 20190504, end: 20190506
  39. SEISHOKU [Concomitant]
     Active Substance: SODIUM CHLORIDE
     Dosage: 250 MILLILITER
     Route: 041
     Dates: start: 20190514, end: 20190515
  40. ACELIO [Concomitant]
     Active Substance: ACETAMINOPHEN
     Indication: PRODUCT USED FOR UNKNOWN INDICATION
     Dosage: 500 MILLIGRAM
     Route: 041
     Dates: start: 20190430, end: 20190430
  41. ACELIO [Concomitant]
     Active Substance: ACETAMINOPHEN
     Dosage: 500 MILLIGRAM
     Route: 041
     Dates: start: 20190505, end: 20190506
  42. UNASYN S [Concomitant]
     Active Substance: AMPICILLIN SODIUM\SULBACTAM SODIUM
     Indication: PRODUCT USED FOR UNKNOWN INDICATION
     Dosage: 3 GRAM
     Route: 041
     Dates: start: 20190503, end: 20190505
  43. VANCOMYCIN HYDROCHLORIDE. [Concomitant]
     Active Substance: VANCOMYCIN HYDROCHLORIDE
     Dosage: 1.5 GRAM
     Route: 041
     Dates: start: 20190511, end: 20190512
  44. SOLDEM 3A [Concomitant]
     Active Substance: CARBOHYDRATES\POTASSIUM CHLORIDE\SODIUM CHLORIDE\SODIUM LACTATE
     Indication: PRODUCT USED FOR UNKNOWN INDICATION
     Dosage: 500 MILLILITER
     Route: 041
     Dates: start: 20190505, end: 20190505
  45. BFLUID [Concomitant]
     Active Substance: AMINO ACIDS\DEXTROSE\ELECTROLYTES NOS\VITAMINS
     Dosage: 500 MILLILITER
     Route: 041
     Dates: start: 20190507, end: 20190507
  46. ASPARA POTASSIUM [Concomitant]
     Active Substance: POTASSIUM ASPARTATE
     Dosage: 10 MILLIEQUIVALENT
     Route: 041
     Dates: start: 20190507, end: 20190507
  47. G-LASTA [Suspect]
     Active Substance: PEGFILGRASTIM
     Indication: COLONY STIMULATING FACTOR THERAPY
     Dosage: 3.6 MILLIGRAM
     Route: 058
     Dates: start: 20190420, end: 20190420
  48. DOCETAXEL. [Concomitant]
     Active Substance: DOCETAXEL
     Dosage: 280 MILLIGRAM
     Route: 041
     Dates: start: 20190418, end: 20190418
  49. PERJETA [Concomitant]
     Active Substance: PERTUZUMAB
     Indication: HER-2 POSITIVE BREAST CANCER
     Dosage: UNK
     Route: 041
     Dates: start: 20190328
  50. ATORVASTATIN [Concomitant]
     Active Substance: ATORVASTATIN
     Dosage: 5 MILLIGRAM, QD, AFTER DINNER
     Route: 048
     Dates: start: 20190430, end: 20190519
  51. ALESION [Concomitant]
     Active Substance: EPINASTINE HYDROCHLORIDE
     Dosage: 20 MILLIGRAM, QD, AFTER DINNER
     Route: 048
     Dates: start: 20190523, end: 20190530
  52. MUCOSTA [Concomitant]
     Active Substance: REBAMIPIDE
     Indication: PRODUCT USED FOR UNKNOWN INDICATION
     Dosage: 100 MILLIGRAM, AS NECESSARY
     Route: 048
     Dates: start: 20190418, end: 20190418
  53. MUCOSTA [Concomitant]
     Active Substance: REBAMIPIDE
     Dosage: 100 MILLIGRAM, AS NECESSARY
     Route: 048
     Dates: start: 20190514, end: 20190515
  54. ONEALFA [Concomitant]
     Active Substance: ALFACALCIDOL
     Indication: PRODUCT USED FOR UNKNOWN INDICATION
     Dosage: 0.5 MICROGRAM, QD
     Route: 048
     Dates: start: 20190520, end: 20190530
  55. VEEN-F [Concomitant]
     Active Substance: CALCIUM CHLORIDE\MAGNESIUM CHLORIDE\POTASSIUM CHLORIDE\SODIUM ACETATE\SODIUM CHLORIDE
     Indication: PRODUCT USED FOR UNKNOWN INDICATION
     Dosage: 1000 MILLILITER
     Route: 041
     Dates: start: 20190430, end: 20190430
  56. VANCOMYCIN HYDROCHLORIDE. [Concomitant]
     Active Substance: VANCOMYCIN HYDROCHLORIDE
     Dosage: 1.25 GRAM
     Route: 041
     Dates: start: 20190504, end: 20190505
  57. VANCOMYCIN HYDROCHLORIDE. [Concomitant]
     Active Substance: VANCOMYCIN HYDROCHLORIDE
     Dosage: 1.25 GRAM
     Route: 041
     Dates: start: 20190514, end: 20190516
  58. ALBUMIN [Concomitant]
     Active Substance: ALBUMIN HUMAN
     Indication: PRODUCT USED FOR UNKNOWN INDICATION
     Dosage: 100 MILLILITER
     Route: 041
     Dates: start: 20190506, end: 20190508
  59. PERJETA [Concomitant]
     Active Substance: PERTUZUMAB
     Dosage: 420 MILLIGRAM
     Route: 041
     Dates: start: 20190418, end: 20190418
  60. HERCEPTIN [Concomitant]
     Active Substance: TRASTUZUMAB
     Indication: HER-2 POSITIVE BREAST CANCER
     Dosage: UNK
     Route: 041
     Dates: start: 20190328
  61. FEBURIC [Concomitant]
     Active Substance: FEBUXOSTAT
     Dosage: 20 MILLIGRAM, QD AFTER BREAKFAST
     Route: 048
     Dates: start: 20190430, end: 20190530
  62. MUCOSTA [Concomitant]
     Active Substance: REBAMIPIDE
     Dosage: 100 MILLIGRAM, AS NECESSARY
     Route: 048
     Dates: start: 20190501, end: 20190512
  63. PREDONINE [Concomitant]
     Active Substance: PREDNISOLONE
     Indication: PRODUCT USED FOR UNKNOWN INDICATION
     Dosage: 10 MG, QD,AFTER BREAKFAST
     Route: 048
     Dates: start: 20190516, end: 20190520
  64. LIPITOR [Concomitant]
     Active Substance: ATORVASTATIN CALCIUM
     Indication: PRODUCT USED FOR UNKNOWN INDICATION
     Dosage: 5 MILLIGRAM, QD
     Route: 048
     Dates: start: 20190520, end: 20190530
  65. SEISHOKU [Concomitant]
     Active Substance: SODIUM CHLORIDE
     Dosage: 250 MILLILITER
     Route: 041
     Dates: start: 20190511, end: 20190512
  66. SEISHOKU [Concomitant]
     Active Substance: SODIUM CHLORIDE
     Dosage: 250 MILLILITER
     Route: 041
     Dates: start: 20190512, end: 20190513
  67. DECADRON [DEXAMETHASONE SODIUM PHOSPHATE] [Concomitant]
     Indication: PRODUCT USED FOR UNKNOWN INDICATION
     Dosage: 6.6 MILLIGRAM
     Route: 041
     Dates: start: 20190418, end: 20190418
  68. MEROPEN [MEROPENEM TRIHYDRATE] [Concomitant]
     Active Substance: MEROPENEM
     Dosage: 0.5 GRAM
     Route: 041
     Dates: start: 20190430, end: 20190502
  69. MEROPEN [MEROPENEM TRIHYDRATE] [Concomitant]
     Active Substance: MEROPENEM
     Dosage: 0.5 GRAM
     Route: 041
     Dates: start: 20190501, end: 20190503
  70. MEROPEN [MEROPENEM TRIHYDRATE] [Concomitant]
     Active Substance: MEROPENEM
     Dosage: 0.5 GRAM
     Route: 041
     Dates: start: 20190507, end: 20190513
  71. SODIUM CHLORIDE. [Concomitant]
     Active Substance: SODIUM CHLORIDE
     Indication: PRODUCT USED FOR UNKNOWN INDICATION
     Dosage: 20 MILLILITER
     Route: 041
     Dates: start: 20190506, end: 20190506
  72. ASPARA POTASSIUM [Concomitant]
     Active Substance: POTASSIUM ASPARTATE
     Dosage: 10 MILLIEQUIVALENT
     Route: 041
     Dates: start: 20190516, end: 20190516
  73. MEROPEN [MEROPENEM TRIHYDRATE] [Concomitant]
     Active Substance: MEROPENEM
     Dosage: 0.5 GRAM
     Route: 041
     Dates: start: 20190506, end: 20190513
  74. ACELIO [Concomitant]
     Active Substance: ACETAMINOPHEN
     Dosage: 1000 MILLIGRAM
     Route: 041
     Dates: start: 20190503, end: 20190503
  75. UNASYN S [Concomitant]
     Active Substance: AMPICILLIN SODIUM\SULBACTAM SODIUM
     Dosage: 3 GRAM
     Route: 041
     Dates: start: 20190503, end: 20190505
  76. UNASYN S [Concomitant]
     Active Substance: AMPICILLIN SODIUM\SULBACTAM SODIUM
     Dosage: 3 GRAM
     Route: 041
     Dates: start: 20190504, end: 20190506
  77. VANCOMYCIN HYDROCHLORIDE. [Concomitant]
     Active Substance: VANCOMYCIN HYDROCHLORIDE
     Dosage: 1.25 GRAM
     Route: 041
     Dates: start: 20190503, end: 20190503
  78. SOLDEM 3A [Concomitant]
     Active Substance: CARBOHYDRATES\POTASSIUM CHLORIDE\SODIUM CHLORIDE\SODIUM LACTATE
     Dosage: 500 MILLILITER
     Route: 041
     Dates: start: 20190506, end: 20190506
  79. SOLDEM 3A [Concomitant]
     Active Substance: CARBOHYDRATES\POTASSIUM CHLORIDE\SODIUM CHLORIDE\SODIUM LACTATE
     Dosage: 500 MILLILITER
     Route: 041
     Dates: start: 20190517, end: 20190519
  80. SOLDEM 3A [Concomitant]
     Active Substance: CARBOHYDRATES\POTASSIUM CHLORIDE\SODIUM CHLORIDE\SODIUM LACTATE
     Dosage: 500 MILLILITER
     Route: 041
     Dates: start: 20190508, end: 20190510
  81. SODIUM CHLORIDE. [Concomitant]
     Active Substance: SODIUM CHLORIDE
     Dosage: 20 MILLILITER
     Route: 041
     Dates: start: 20190506, end: 20190507
  82. SODIUM CHLORIDE. [Concomitant]
     Active Substance: SODIUM CHLORIDE
     Dosage: 20 MILLILITER
     Route: 041
     Dates: start: 20190507, end: 20190507
  83. BFLUID [Concomitant]
     Active Substance: AMINO ACIDS\DEXTROSE\ELECTROLYTES NOS\VITAMINS
     Indication: PRODUCT USED FOR UNKNOWN INDICATION
     Dosage: 500 MILLILITER
     Route: 041
     Dates: start: 20190506, end: 20190507
  84. ASPARA POTASSIUM [Concomitant]
     Active Substance: POTASSIUM ASPARTATE
     Indication: PRODUCT USED FOR UNKNOWN INDICATION
     Dosage: 10 MILLIEQUIVALENT
     Route: 041
     Dates: start: 20190506, end: 20190507
  85. KCL [Concomitant]
     Active Substance: POTASSIUM CHLORIDE
     Indication: PRODUCT USED FOR UNKNOWN INDICATION
     Dosage: 20 MILLIEQUIVALENT
     Route: 041
     Dates: start: 20190508, end: 20190510
  86. NEXIUM [Concomitant]
     Active Substance: ESOMEPRAZOLE MAGNESIUM
     Indication: PRODUCT USED FOR UNKNOWN INDICATION
     Dosage: 20 MILLIGRAM, QD (AFTER DINNER)
     Route: 048
     Dates: end: 20190419
  87. NEXIUM [Concomitant]
     Active Substance: ESOMEPRAZOLE MAGNESIUM
     Dosage: 20 MILLIGRAM, QD (AFTER DINNER)
     Route: 048
     Dates: start: 20190430, end: 20190530
  88. CALONAL [Concomitant]
     Active Substance: ACETAMINOPHEN
     Indication: PRODUCT USED FOR UNKNOWN INDICATION
     Dosage: 600 MILLIGRAM, AS NECESSARY
     Route: 048
     Dates: start: 20190430, end: 20190501
  89. PREDONINE [Concomitant]
     Active Substance: PREDNISOLONE
     Dosage: 5 MG, QD,AFTER BREAKFAST
     Route: 048
     Dates: start: 20190521, end: 20190525
  90. SEISHOKU [Concomitant]
     Active Substance: SODIUM CHLORIDE
     Dosage: 100 MILLILITER
     Route: 041
     Dates: start: 20190503, end: 20190505
  91. SEISHOKU [Concomitant]
     Active Substance: SODIUM CHLORIDE
     Dosage: 100 MILLILITER
     Route: 041
     Dates: start: 20190503, end: 20190508
  92. SEISHOKU [Concomitant]
     Active Substance: SODIUM CHLORIDE
     Dosage: 250 MILLILITER
     Route: 041
     Dates: start: 20190506, end: 20190508
  93. GRANISETRON [GRANISETRON HYDROCHLORIDE] [Concomitant]
     Active Substance: GRANISETRON HYDROCHLORIDE
     Indication: PRODUCT USED FOR UNKNOWN INDICATION
     Dosage: 3 MILLIGRAM
     Route: 041
     Dates: start: 20190418, end: 20190418
  94. MEROPEN [MEROPENEM TRIHYDRATE] [Concomitant]
     Active Substance: MEROPENEM
     Indication: PRODUCT USED FOR UNKNOWN INDICATION
     Dosage: 0.5 GRAM
     Route: 041
     Dates: start: 20190430, end: 20190502
  95. VANCOMYCIN HYDROCHLORIDE. [Concomitant]
     Active Substance: VANCOMYCIN HYDROCHLORIDE
     Indication: PRODUCT USED FOR UNKNOWN INDICATION
     Dosage: 1.25 GRAM
     Route: 041
     Dates: start: 20190503, end: 20190504
  96. VANCOMYCIN HYDROCHLORIDE. [Concomitant]
     Active Substance: VANCOMYCIN HYDROCHLORIDE
     Dosage: 1.5 GRAM
     Route: 041
     Dates: start: 20190506, end: 20190508
  97. VANCOMYCIN HYDROCHLORIDE. [Concomitant]
     Active Substance: VANCOMYCIN HYDROCHLORIDE
     Dosage: 1.75 GRAM
     Route: 041
     Dates: start: 20190508, end: 20190510
  98. BEZAFIBRATE [Concomitant]
     Active Substance: BEZAFIBRATE
     Indication: PRODUCT USED FOR UNKNOWN INDICATION
     Dosage: 100 MILLIGRAM, QD, AFTER DINNER
     Route: 048
     Dates: end: 20190418
  99. EPINASTINE HYDROCHLORIDE. [Concomitant]
     Active Substance: EPINASTINE HYDROCHLORIDE
     Indication: PRODUCT USED FOR UNKNOWN INDICATION
     Dosage: 20 MILLIGRAM, QD AFTER DINNER
     Route: 048
     Dates: start: 20190430, end: 20190513
  100. SEISHOKU [Concomitant]
     Active Substance: SODIUM CHLORIDE
     Dosage: 250 MILLILITER
     Route: 041
     Dates: start: 20190503, end: 20190504
  101. SEISHOKU [Concomitant]
     Active Substance: SODIUM CHLORIDE
     Dosage: 100 MILLILITER
     Route: 041
     Dates: start: 20190503, end: 20190503
  102. SEISHOKU [Concomitant]
     Active Substance: SODIUM CHLORIDE
     Dosage: 250 MILLILITER
     Route: 041
     Dates: start: 20190504, end: 20190505
  103. VEEN-F [Concomitant]
     Active Substance: CALCIUM CHLORIDE\MAGNESIUM CHLORIDE\POTASSIUM CHLORIDE\SODIUM ACETATE\SODIUM CHLORIDE
     Dosage: 500 MILLILITER
     Route: 041
     Dates: start: 20190501, end: 20190504
  104. VANCOMYCIN HYDROCHLORIDE. [Concomitant]
     Active Substance: VANCOMYCIN HYDROCHLORIDE
     Dosage: 1.5 GRAM
     Route: 041
     Dates: start: 20190505, end: 20190507
  105. SOLDEM 3A [Concomitant]
     Active Substance: CARBOHYDRATES\POTASSIUM CHLORIDE\SODIUM CHLORIDE\SODIUM LACTATE
     Dosage: 500 MILLILITER
     Route: 041
     Dates: start: 20190516, end: 20190516
  106. SODIUM CHLORIDE. [Concomitant]
     Active Substance: SODIUM CHLORIDE
     Dosage: 20 MILLILITER
     Route: 041
     Dates: start: 20190505, end: 20190505

REACTIONS (2)
  - Aortitis [Recovering/Resolving]
  - Back pain [Recovering/Resolving]

NARRATIVE: CASE EVENT DATE: 20190427
